FAERS Safety Report 26065966 (Version 3)
Quarter: 2025Q4

REPORT INFORMATION
  Report Type: Report from Study
  Country: US (occurrence: US)
  Receive Date: 20251119
  Receipt Date: 20251223
  Transmission Date: 20260118
  Serious: Yes (Other)
  Sender: MALLINCKRODT
  Company Number: US-MALLINCKRODT-MNK202507274

PATIENT
  Age: 54 Year
  Sex: Male

DRUGS (5)
  1. CORTICOTROPIN [Suspect]
     Active Substance: CORTICOTROPIN
     Indication: Rheumatoid arthritis
     Route: 058
     Dates: start: 202511
  2. CORTICOTROPIN [Suspect]
     Active Substance: CORTICOTROPIN
     Indication: Rheumatoid arthritis
  3. RINVOQ [Concomitant]
     Active Substance: UPADACITINIB
     Dosage: UNKNOWN
  4. PREDNISONE [Concomitant]
     Active Substance: PREDNISONE
     Dosage: UNKNOWN
  5. SIMPONI ARIA [Concomitant]
     Active Substance: GOLIMUMAB
     Dosage: UNKNOWN

REACTIONS (13)
  - Fall [Unknown]
  - Rib fracture [Not Recovered/Not Resolved]
  - Mental fatigue [Unknown]
  - Stress [Unknown]
  - Injection site bruising [Unknown]
  - Fatigue [Not Recovered/Not Resolved]
  - Insomnia [Unknown]
  - Irritability [Unknown]
  - Injection site swelling [Recovered/Resolved]
  - Injection site discharge [Unknown]
  - Injection site haemorrhage [Unknown]
  - Herpes zoster [Recovering/Resolving]
  - Underdose [Unknown]

NARRATIVE: CASE EVENT DATE: 20251101
